FAERS Safety Report 6471991-2 (Version None)
Quarter: 2009Q4

REPORT INFORMATION
  Report Type: 
  Country: None (occurrence: None)
  Receive Date: 20091203
  Receipt Date: 20080402
  Transmission Date: 20100525
  Serious: Yes (Death, Hospitalization, Other)
  Sender: FDA-Public Use
  Company Number: US-ELI_LILLY_AND_COMPANY-US200804000598

PATIENT
  Sex: Male

DRUGS (2)
  1. HUMALOG [Suspect]
  2. NOVOLIN [Concomitant]

REACTIONS (3)
  - ABDOMINAL DISTENSION [None]
  - CARDIAC DISORDER [None]
  - GASTRIC DISORDER [None]
